FAERS Safety Report 25170037 (Version 1)
Quarter: 2025Q2

REPORT INFORMATION
  Report Type: Spontaneous
  Country: US (occurrence: US)
  Receive Date: 20250407
  Receipt Date: 20250407
  Transmission Date: 20250716
  Serious: No
  Sender: ELI LILLY AND CO
  Company Number: US-ELI_LILLY_AND_COMPANY-US202504004626

PATIENT
  Sex: Male

DRUGS (3)
  1. ERBITUX [Suspect]
     Active Substance: CETUXIMAB
     Indication: Colorectal cancer
     Route: 065
  2. ERBITUX [Suspect]
     Active Substance: CETUXIMAB
     Route: 065
  3. BRAFTOVI [Concomitant]
     Active Substance: ENCORAFENIB
     Indication: Colorectal cancer

REACTIONS (1)
  - Infusion related reaction [Recovered/Resolved]
